FAERS Safety Report 6482964-8 (Version None)
Quarter: 2009Q4

REPORT INFORMATION
  Report Type: 
  Country: None (occurrence: None)
  Receive Date: 20091123
  Receipt Date: 20090818
  Transmission Date: 20100525
  Serious: No
  Sender: FDA-Public Use
  Company Number: 8050581

PATIENT
  Age: 47 Year
  Sex: Female
  Weight: 61.3 kg

DRUGS (8)
  1. CIMZIA [Suspect]
     Indication: CROHN'S DISEASE
     Dosage: 400 MG SC
     Route: 058
     Dates: start: 20080901
  2. OXYCONTIN [Concomitant]
  3. NEURONTIN [Concomitant]
  4. ULTRAM [Concomitant]
  5. VYTORIN [Concomitant]
  6. TRAZODONE HCL [Concomitant]
  7. HALCION [Concomitant]
  8. ESTRACE [Concomitant]

REACTIONS (1)
  - RASH [None]
